FAERS Safety Report 9531325 (Version 1)
Quarter: 2013Q1

REPORT INFORMATION
  Report Type: Spontaneous
  Country: US (occurrence: None)
  Receive Date: 20130319
  Receipt Date: 20130319
  Transmission Date: 20140127
  Serious: Yes (Other)
  Sender: FDA-Public Use
  Company Number: US-JNJFOC-20121200990

PATIENT
  Age: 68 Year
  Sex: Female
  Weight: 65.77 kg

DRUGS (8)
  1. ROGAINE FOR MEN EXTRA STRENGTH FOAM [Suspect]
     Indication: HAIR GROWTH ABNORMAL
     Dosage: ACCORDING TO INSTRUCTIONS
     Dates: end: 20120920
  2. VITAMIN B (VITAMIN B NOS) [Concomitant]
  3. PROTEIN SUPPLEMENT (PROTEIN SUPPLEMENTS) [Concomitant]
  4. CHROMIUM (CHROMIUM) [Concomitant]
  5. PROTEIN SHAKES (PROTEIN SUPPLEMENTS) [Concomitant]
  6. UNKNOWN MEDICATION (ALL OTHER THERAPEUTIC PRODUCTS) [Concomitant]
  7. BIOTIN (BIOTIN) [Concomitant]
  8. VITAMIN D3 (COLECALCIFEROL) [Concomitant]

REACTIONS (3)
  - Weight increased [None]
  - Joint swelling [None]
  - Wrong drug administered [None]
